FAERS Safety Report 24341084 (Version 1)
Quarter: 2024Q3

REPORT INFORMATION
  Report Type: Spontaneous
  Country: JP (occurrence: JP)
  Receive Date: 20240919
  Receipt Date: 20240919
  Transmission Date: 20241017
  Serious: Yes (Other)
  Sender: NOVARTIS
  Company Number: JP-002147023-NVSJ2024JP007830

PATIENT
  Age: 62 Year
  Sex: Female

DRUGS (1)
  1. LUTATHERA [Suspect]
     Active Substance: LUTETIUM OXODOTREOTIDE LU-177
     Indication: Pancreatic neuroendocrine tumour metastatic
     Dosage: 7.4 GBQ
     Route: 042
     Dates: start: 20240521, end: 20240521

REACTIONS (5)
  - Disseminated intravascular coagulation [Unknown]
  - Pancreatic neuroendocrine tumour metastatic [Unknown]
  - Malignant neoplasm progression [Unknown]
  - Platelet count decreased [Not Recovered/Not Resolved]
  - White blood cell count decreased [Unknown]

NARRATIVE: CASE EVENT DATE: 20240601
